FAERS Safety Report 4902469-2 (Version None)
Quarter: 2006Q1

REPORT INFORMATION
  Report Type: 
  Country: None (occurrence: None)
  Receive Date: 20060202
  Receipt Date: 20060118
  Transmission Date: 20060701
  Serious: Yes (Other)
  Sender: FDA-Public Use
  Company Number: 805#1#2006-00001

PATIENT
  Age: 81 Year
  Sex: Male

DRUGS (8)
  1. ALPROSTADIL [Suspect]
     Indication: LUMBAR SPINAL STENOSIS
     Dosage: 1.60 MCG (60 MCG 1 IN 1 DAY(S)); INTRAVENOUS DRIP
     Route: 041
     Dates: start: 20030421, end: 20041105
  2. ALPROSTADIL [Suspect]
     Indication: LUMBAR SPINAL STENOSIS
     Dosage: 1.60 MCG (60 MCG 1 IN 1 DAY(S)); INTRAVENOUS DRIP
     Route: 041
     Dates: start: 20041106, end: 20041107
  3. ALPROSTADIL [Suspect]
     Indication: LUMBAR SPINAL STENOSIS
     Dosage: 1.60 MCG (60 MCG 1 IN 1 DAY(S)); INTRAVENOUS DRIP
     Route: 041
     Dates: start: 20041109, end: 20050613
  4. ALPROSTADIL [Suspect]
     Indication: LUMBAR SPINAL STENOSIS
     Dosage: 1.60 MCG (60 MCG 1 IN 1 DAY(S)); INTRAVENOUS DRIP
     Route: 041
     Dates: start: 20050629, end: 20050704
  5. LOXOPROFEN SODIUM (LOXOPROFEN SODIUM) [Suspect]
     Dates: start: 20030421, end: 20040704
  6. REBAMIPIDE (REBAMIPIDE) [Suspect]
     Dates: start: 20030421, end: 20050704
  7. RISEDRONATE SODIUM HYDRATE (RISEDRONATE SODIUM) [Suspect]
     Dates: start: 20050524, end: 20050704
  8. LIMAPROST ALFADEX(ALPROSTADIL) [Concomitant]

REACTIONS (6)
  - CONDITION AGGRAVATED [None]
  - DECREASED APPETITE [None]
  - LUMBAR SPINAL STENOSIS [None]
  - NAUSEA [None]
  - PYREXIA [None]
  - RASH GENERALISED [None]
